FAERS Safety Report 15567749 (Version 5)
Quarter: 2019Q1

REPORT INFORMATION
  Report Type: Report from Study
  Country: US (occurrence: US)
  Receive Date: 20181030
  Receipt Date: 20190213
  Transmission Date: 20190417
  Serious: Yes (Death, Other)
  Sender: FDA-Public Use
  Company Number: US-ACTELION-A-NJ2018-178063

PATIENT
  Age: 72 Year
  Sex: Male
  Weight: 54.42 kg

DRUGS (4)
  1. SPIRONOLACTONE. [Concomitant]
     Active Substance: SPIRONOLACTONE
     Dosage: 50 MG, BID
  2. ADEMPAS [Concomitant]
     Active Substance: RIOCIGUAT
  3. OPSUMIT [Suspect]
     Active Substance: MACITENTAN
     Indication: PULMONARY HYPERTENSION
     Dosage: 10 MG, QD
     Route: 048
  4. DILTIAZEM. [Concomitant]
     Active Substance: DILTIAZEM

REACTIONS (8)
  - Flatulence [Unknown]
  - Hepatic cancer [Fatal]
  - Rash pruritic [Unknown]
  - Abdominal distension [Unknown]
  - Oropharyngeal pain [Unknown]
  - Dyspnoea exertional [Recovering/Resolving]
  - Peripheral swelling [Unknown]
  - Radiotherapy [Unknown]

NARRATIVE: CASE EVENT DATE: 20180815
